FAERS Safety Report 16201606 (Version 1)
Quarter: 2019Q2

REPORT INFORMATION
  Report Type: Report from Study
  Country: CN (occurrence: CN)
  Receive Date: 20190416
  Receipt Date: 20190416
  Transmission Date: 20190711
  Serious: Yes (Other)
  Sender: FDA-Public Use
  Company Number: CN-ROCHE-2302183

PATIENT

DRUGS (6)
  1. OXALIPLATIN. [Suspect]
     Active Substance: OXALIPLATIN
     Indication: HER-2 POSITIVE GASTRIC CANCER
     Dosage: DAY 1 OF EACH CYCLE
     Route: 042
  2. GIMERACIL/OTERACIL POTASSIUM/TEGAFUR [Suspect]
     Active Substance: GIMERACIL\OTERACIL\TEGAFUR
     Indication: HER-2 POSITIVE GASTRIC CANCER
     Dosage: DAYS 1 - 14 OF EACH CYCLE; AFTER THE BREAKFAST AND DINNER
     Route: 048
  3. TRASTUZUMAB. [Suspect]
     Active Substance: TRASTUZUMAB
     Indication: HER-2 POSITIVE GASTRIC CANCER
     Route: 042
  4. CISPLATIN. [Suspect]
     Active Substance: CISPLATIN
     Indication: HER-2 POSITIVE GASTRIC CANCER
     Dosage: DAYS 1-3 OF EACH CYCLE
     Route: 042
  5. TRASTUZUMAB. [Suspect]
     Active Substance: TRASTUZUMAB
     Route: 042
  6. IRINOTECAN [Suspect]
     Active Substance: IRINOTECAN
     Indication: HER-2 POSITIVE GASTRIC CANCER
     Dosage: DAYS 1 AND 8 OF EACH CYCLE
     Route: 042

REACTIONS (6)
  - Renal impairment [Unknown]
  - Bone marrow failure [Unknown]
  - Vomiting [Unknown]
  - Nausea [Unknown]
  - Transaminases increased [Unknown]
  - Neuropathy peripheral [Unknown]
